FAERS Safety Report 8519086-8 (Version None)
Quarter: 2012Q3

REPORT INFORMATION
  Report Type: 
  Country: None (occurrence: None)
  Receive Date: 20120712
  Receipt Date: 20120712
  Transmission Date: 20120928
  Serious: Yes (Hospitalization)
  Sender: FDA-Public Use
  Company Number: None

PATIENT
  Age: 57 Year
  Sex: Male
  Weight: 97.3 kg

DRUGS (2)
  1. IBUPROFEN [Suspect]
     Dosage: 1000 MG EVERY DAY PO
     Route: 048
  2. SULFAMETHOXAZOLE AND TRIMETHOPRIM [Suspect]
     Indication: INFECTION
     Dosage: 1 TAB BID PO
     Route: 048
     Dates: start: 20120703, end: 20120709

REACTIONS (5)
  - RENAL TUBULAR NECROSIS [None]
  - RENAL FAILURE ACUTE [None]
  - URINARY TRACT OBSTRUCTION [None]
  - HYPERKALAEMIA [None]
  - POLLAKIURIA [None]
